FAERS Safety Report 7065063-6 (Version None)
Quarter: 2010Q4

REPORT INFORMATION
  Report Type: 
  Country: None (occurrence: None)
  Receive Date: 20101022
  Receipt Date: 20101022
  Transmission Date: 20110411
  Serious: Yes (Other)
  Sender: FDA-Public Use
  Company Number: None

PATIENT
  Age: 68 Year
  Sex: Female
  Weight: 90.7194 kg

DRUGS (1)
  1. CABERGOLINE [Suspect]
     Indication: PITUITARY TUMOUR
     Dosage: 2 TABLET EVERY WEEK PO
     Route: 048
     Dates: start: 20040201, end: 20101021

REACTIONS (2)
  - BLOOD PROLACTIN INCREASED [None]
  - PRODUCT QUALITY ISSUE [None]
